FAERS Safety Report 18826023 (Version 2)
Quarter: 2021Q1

REPORT INFORMATION
  Report Type: Spontaneous
  Country: US (occurrence: US)
  Receive Date: 20210202
  Receipt Date: 20210210
  Transmission Date: 20210419
  Serious: Yes (Death, Other)
  Sender: FDA-Public Use
  Company Number: US-LUNDBECK-DKLU3027680

PATIENT
  Age: 90 Year
  Sex: Male

DRUGS (4)
  1. NORTHERA [Suspect]
     Active Substance: DROXIDOPA
     Indication: HYPOTENSION
     Route: 048
     Dates: start: 201702
  2. NORTHERA [Suspect]
     Active Substance: DROXIDOPA
     Indication: LOSS OF CONSCIOUSNESS
     Route: 048
     Dates: start: 201706
  3. NORTHERA [Suspect]
     Active Substance: DROXIDOPA
     Indication: AUTONOMIC NEUROPATHY
  4. NORTHERA [Suspect]
     Active Substance: DROXIDOPA
     Indication: ORTHOSTATIC HYPOTENSION

REACTIONS (8)
  - Product use complaint [Not Recovered/Not Resolved]
  - Death [Fatal]
  - Bladder cancer [Not Recovered/Not Resolved]
  - Dysphagia [Not Recovered/Not Resolved]
  - Dementia [Not Recovered/Not Resolved]
  - Device related infection [Not Recovered/Not Resolved]
  - Loss of consciousness [Not Recovered/Not Resolved]
  - Product dose omission issue [Not Recovered/Not Resolved]

NARRATIVE: CASE EVENT DATE: 202101
